FAERS Safety Report 5708614-3 (Version None)
Quarter: 2008Q2

REPORT INFORMATION
  Report Type: 
  Country: None (occurrence: None)
  Receive Date: 20080417
  Receipt Date: 20080409
  Transmission Date: 20081010
  Serious: Yes (Other)
  Sender: FDA-Public Use
  Company Number: GB-SANOFI-SYNTHELABO-A01200804110

PATIENT
  Sex: Female

DRUGS (3)
  1. MAGNESIUM [Concomitant]
  2. ELOXATIN [Suspect]
     Dosage: UNK
     Route: 042
  3. CALCIUM [Concomitant]

REACTIONS (1)
  - LARYNGOSPASM [None]
